FAERS Safety Report 14487579 (Version 1)
Quarter: 2018Q1

REPORT INFORMATION
  Report Type: Spontaneous
  Country: US (occurrence: US)
  Receive Date: 20180203
  Receipt Date: 20180203
  Transmission Date: 20180509
  Serious: Yes (Hospitalization)
  Sender: FDA-Public Use
  Company Number: None

PATIENT
  Age: 61 Year
  Sex: Male
  Weight: 81.51 kg

DRUGS (1)
  1. SULFAMETHOXAZOLE/TRIMETHOPRIM [Suspect]
     Active Substance: SULFAMETHOXAZOLE\TRIMETHOPRIM
     Indication: INFECTION
     Dosage: 800/160 MG BID PO
     Route: 048
     Dates: start: 20170629, end: 20170714

REACTIONS (3)
  - Pancytopenia [None]
  - Hypotension [None]
  - Febrile neutropenia [None]

NARRATIVE: CASE EVENT DATE: 20170714
